FAERS Safety Report 10367359 (Version 1)
Quarter: 2014Q3

REPORT INFORMATION
  Report Type: Spontaneous
  Country: CA (occurrence: None)
  Receive Date: 20140805
  Receipt Date: 20140805
  Transmission Date: 20150326
  Serious: Yes (Death, Hospitalization)
  Sender: FDA-Public Use
  Company Number: 2462720

PATIENT
  Age: 7 Year
  Sex: Female

DRUGS (2)
  1. METHOTREXATE [Concomitant]
     Active Substance: METHOTREXATE
  2. VINCRISTINE SULFATE. [Suspect]
     Active Substance: VINCRISTINE SULFATE
     Indication: ACUTE LYMPHOCYTIC LEUKAEMIA
     Route: 037

REACTIONS (16)
  - Respiratory failure [None]
  - Paralysis [None]
  - Nystagmus [None]
  - Inappropriate antidiuretic hormone secretion [None]
  - Wrong drug administered [None]
  - Urinary retention [None]
  - Eye movement disorder [None]
  - Hiccups [None]
  - Hyponatraemic seizure [None]
  - Areflexia [None]
  - Unresponsive to stimuli [None]
  - Confusional state [None]
  - Drug administration error [None]
  - Coma [None]
  - Consciousness fluctuating [None]
  - Paralysis flaccid [None]
